FAERS Safety Report 22824399 (Version 7)
Quarter: 2023Q4

REPORT INFORMATION
  Report Type: Spontaneous
  Country: CN (occurrence: CN)
  Receive Date: 20230815
  Receipt Date: 20231229
  Transmission Date: 20240110
  Serious: Yes (Hospitalization, Other)
  Sender: FDA-Public Use
  Company Number: CN-BoehringerIngelheim-2023-BI-254673

PATIENT
  Age: 59 Year
  Sex: Male
  Weight: 53 kg

DRUGS (24)
  1. GILOTRIF [Suspect]
     Active Substance: AFATINIB
     Indication: Lung neoplasm malignant
     Route: 048
     Dates: start: 20230313, end: 20230323
  2. GILOTRIF [Suspect]
     Active Substance: AFATINIB
     Indication: Metastases to pleura
     Route: 048
     Dates: start: 20230328, end: 20230328
  3. GILOTRIF [Suspect]
     Active Substance: AFATINIB
     Indication: Metastases to lymph nodes
     Route: 048
     Dates: start: 20230424, end: 20230714
  4. GILOTRIF [Suspect]
     Active Substance: AFATINIB
     Indication: K-ras gene mutation
     Route: 048
     Dates: start: 20230722, end: 20230728
  5. GILOTRIF [Suspect]
     Active Substance: AFATINIB
     Route: 048
     Dates: start: 20230803, end: 20230828
  6. GILOTRIF [Suspect]
     Active Substance: AFATINIB
     Route: 048
     Dates: start: 20230830, end: 20230905
  7. LOPERAMIDE HYDROCHLORIDE [Concomitant]
     Active Substance: LOPERAMIDE HYDROCHLORIDE
     Indication: Diarrhoea
     Dosage: UNIT DOSE: 2 DOSAGE FORM.
     Route: 048
     Dates: start: 20230714, end: 20230714
  8. LOPERAMIDE HYDROCHLORIDE [Concomitant]
     Active Substance: LOPERAMIDE HYDROCHLORIDE
     Dosage: UNIT DOSE:2 DOSAGE FORM.
     Route: 048
     Dates: start: 20230724, end: 20230724
  9. LOPERAMIDE HYDROCHLORIDE [Concomitant]
     Active Substance: LOPERAMIDE HYDROCHLORIDE
     Dosage: UNIT DOSE:2 DOSAGE FORM.
     Route: 048
     Dates: start: 20230807, end: 20230807
  10. LOPERAMIDE HYDROCHLORIDE [Concomitant]
     Active Substance: LOPERAMIDE HYDROCHLORIDE
     Dosage: UNIT DOSE:2 DOSAGE FORM.
     Route: 048
     Dates: start: 20230810, end: 20230810
  11. LOPERAMIDE HYDROCHLORIDE [Concomitant]
     Active Substance: LOPERAMIDE HYDROCHLORIDE
     Dosage: UNIT DOSE:2 DOSAGE FORM.
     Route: 048
     Dates: start: 20230816, end: 20230816
  12. Montmorillonite powder [Concomitant]
     Indication: Prophylaxis against diarrhoea
     Route: 048
     Dates: start: 20230722, end: 20230727
  13. Montmorillonite powder [Concomitant]
     Dosage: DAY
     Route: 048
     Dates: start: 20230804, end: 20230814
  14. ASCORBIC ACID [Concomitant]
     Active Substance: ASCORBIC ACID
     Indication: Nutritional supplementation
     Route: 041
     Dates: start: 20230728, end: 20230728
  15. 10% potassium Chloride Injection [Concomitant]
     Indication: Nutritional supplementation
     Route: 041
     Dates: start: 20230728, end: 20230728
  16. 10% potassium Chloride Injection [Concomitant]
     Route: 041
     Dates: start: 20230728, end: 20230728
  17. Compound Amino Acid Injection (18AA-V-SF) [Concomitant]
     Indication: Nutritional supplementation
     Route: 041
     Dates: start: 20230728, end: 20230728
  18. DEXTROSE\SODIUM CHLORIDE [Concomitant]
     Active Substance: DEXTROSE\SODIUM CHLORIDE
     Indication: Nutritional supplementation
     Route: 041
     Dates: start: 20230728, end: 20230728
  19. Fat-Soluble Vitamin For Injection (?) [Concomitant]
     Indication: Nutritional supplementation
     Dosage: UNIT DOSE :1 DOSAGE FORM.
     Route: 041
     Dates: start: 20230728, end: 20230728
  20. CEFUROXIME SODIUM [Concomitant]
     Active Substance: CEFUROXIME SODIUM
     Indication: Prophylaxis
     Route: 041
     Dates: start: 20230727, end: 20230727
  21. CEFUROXIME SODIUM [Concomitant]
     Active Substance: CEFUROXIME SODIUM
     Route: 041
     Dates: start: 20230728, end: 20230801
  22. Polyethylene Glycol Electrolytes Powder (?) [Concomitant]
     Indication: Supplementation therapy
     Route: 048
     Dates: start: 20230727, end: 20230727
  23. ESOMEPRAZOLE SODIUM [Concomitant]
     Active Substance: ESOMEPRAZOLE SODIUM
     Indication: Prophylaxis
     Route: 041
     Dates: start: 20230728, end: 20230728
  24. Esomeprazole enteric coated tablets [Concomitant]
     Indication: Prophylaxis
     Route: 048
     Dates: start: 20230728, end: 20230805

REACTIONS (12)
  - Anal fistula [Recovered/Resolved]
  - Malignant neoplasm progression [Unknown]
  - Diarrhoea [Recovered/Resolved]
  - Vomiting [Recovered/Resolved]
  - Hepatic function abnormal [Recovered/Resolved]
  - Diarrhoea [Recovered/Resolved]
  - Diarrhoea [Recovered/Resolved]
  - Diarrhoea [Recovered/Resolved]
  - Constipation [Recovered/Resolved]
  - Diarrhoea [Recovered/Resolved]
  - Diarrhoea [Recovered/Resolved]
  - Off label use [Unknown]

NARRATIVE: CASE EVENT DATE: 20230317
